FAERS Safety Report 10178084 (Version 2)
Quarter: 2014Q2

REPORT INFORMATION
  Report Type: Report from Study
  Country: JP (occurrence: JP)
  Receive Date: 20140518
  Receipt Date: 20140519
  Transmission Date: 20141212
  Serious: Yes (Disabling)
  Sender: FDA-Public Use
  Company Number: JP-009507513-1405JPN005208

PATIENT
  Sex: Female

DRUGS (2)
  1. CANCIDAS FOR INTRAVENOUS DRIP INFUSION 70MG [Suspect]
     Indication: FUNGAL INFECTION
     Dosage: 70 MG, ONCE
     Route: 041
     Dates: start: 201404, end: 201404
  2. CANCIDAS FOR INTRAVENOUS DRIP INFUSION 50MG [Suspect]
     Indication: FUNGAL INFECTION
     Dosage: 50 MG, QD
     Route: 041
     Dates: start: 201404, end: 201404

REACTIONS (1)
  - Cerebral infarction [Recovering/Resolving]
